FAERS Safety Report 17123620 (Version 1)
Quarter: 2019Q4

REPORT INFORMATION
  Report Type: Spontaneous
  Country: SE (occurrence: SE)
  Receive Date: 20191206
  Receipt Date: 20191206
  Transmission Date: 20200122
  Serious: Yes (Other)
  Sender: FDA-Public Use
  Company Number: SE-LUNDBECK-DKLU3008422

PATIENT
  Age: 23 Month
  Sex: Male
  Weight: 13 kg

DRUGS (3)
  1. SABRILEX [Suspect]
     Active Substance: VIGABATRIN
     Indication: INFANTILE SPASMS
     Route: 065
     Dates: start: 201808
  2. TRILEPTAL [Concomitant]
     Active Substance: OXCARBAZEPINE
     Indication: PRODUCT USED FOR UNKNOWN INDICATION
     Route: 065
     Dates: start: 201808
  3. SABRILEX [Suspect]
     Active Substance: VIGABATRIN
     Route: 065
     Dates: start: 201808

REACTIONS (2)
  - Petit mal epilepsy [Not Recovered/Not Resolved]
  - Partial seizures [Not Recovered/Not Resolved]

NARRATIVE: CASE EVENT DATE: 2019
